FAERS Safety Report 6985194-6 (Version None)
Quarter: 2010Q3

REPORT INFORMATION
  Report Type: 
  Country: None (occurrence: None)
  Receive Date: 20100913
  Receipt Date: 20100906
  Transmission Date: 20110219
  Serious: Yes (Hospitalization)
  Sender: FDA-Public Use
  Company Number: 018297

PATIENT
  Sex: Female
  Weight: 84 kg

DRUGS (5)
  1. CERTOLIZUMAB PEGOL (CERTOLIZUMAB PEGOL) [Suspect]
     Indication: RHEUMATOID ARTHRITIS
     Dosage: (200 MG 1X/2 WEEKS, NBR OF DOSES: 19 SUBCUTANEOUS)
     Route: 058
     Dates: start: 20091102, end: 20100712
  2. METHOTREXATE [Concomitant]
  3. MOVALIS [Concomitant]
  4. FOLSAN [Concomitant]
  5. ZURCAL /01263201/ [Concomitant]

REACTIONS (1)
  - LYMPH NODE TUBERCULOSIS [None]
